FAERS Safety Report 4820458-3 (Version None)
Quarter: 2005Q4

REPORT INFORMATION
  Report Type: 
  Country: None (occurrence: None)
  Receive Date: 20051104
  Receipt Date: 20051028
  Transmission Date: 20060501
  Serious: Yes (Other)
  Sender: FDA-Public Use
  Company Number: PHBS2005JP16032

PATIENT
  Age: 72 Year
  Sex: Male

DRUGS (1)
  1. NEORAL [Suspect]
     Indication: PSORIASIS
     Dosage: 175 MG/DAY
     Route: 048

REACTIONS (3)
  - DIABETIC COMPLICATION [None]
  - HYPERCALCAEMIA [None]
  - THROMBOCYTOPENIA [None]
